FAERS Safety Report 23714849 (Version 3)
Quarter: 2024Q2

REPORT INFORMATION
  Report Type: Spontaneous
  Country: US (occurrence: US)
  Receive Date: 20240406
  Receipt Date: 20240504
  Transmission Date: 20240715
  Serious: No
  Sender: FDA-Public Use
  Company Number: US-HETERO-HET2024US00908

PATIENT
  Sex: Female
  Weight: 49.887 kg

DRUGS (1)
  1. MESALAMINE [Suspect]
     Active Substance: MESALAMINE
     Indication: Proctitis ulcerative
     Dosage: 1000 MILLIGRAM
     Route: 065
     Dates: start: 2013, end: 202401

REACTIONS (1)
  - Drug ineffective [Unknown]
